FAERS Safety Report 4766937-9 (Version None)
Quarter: 2005Q3

REPORT INFORMATION
  Report Type: 
  Country: None (occurrence: None)
  Receive Date: 20050913
  Receipt Date: 20050902
  Transmission Date: 20060218
  Serious: Yes (Other)
  Sender: FDA-Public Use
  Company Number: CZ-BOEHRINGER INGELHEIM PHARMACEUTICALS, INC.-2005-DE-03558GD

PATIENT
  Age: 67 Year
  Sex: Female

DRUGS (1)
  1. TELMISARTAN [Suspect]
     Indication: HYPERTENSION

REACTIONS (2)
  - BLOOD CREATININE INCREASED [None]
  - RENAL FAILURE CHRONIC [None]
